FAERS Safety Report 15400482 (Version 2)
Quarter: 2018Q4

REPORT INFORMATION
  Report Type: Report from Study
  Country: CO (occurrence: CO)
  Receive Date: 20180919
  Receipt Date: 20181003
  Transmission Date: 20190204
  Serious: Yes (Other)
  Sender: FDA-Public Use
  Company Number: CO-AMGEN-COLSL2018128335

PATIENT
  Age: 54 Year
  Sex: Female
  Weight: 78 kg

DRUGS (4)
  1. OXALIPLATIN. [Concomitant]
     Active Substance: OXALIPLATIN
     Dosage: 156 MG, UNK (EVERY 15 DAYS)
     Dates: start: 20180425, end: 20180829
  2. CALCIUM FOLINATE [Concomitant]
     Active Substance: LEUCOVORIN CALCIUM
     Dosage: 737 MG, UNK (EVERY 15 DAYS)
     Dates: start: 20180425, end: 20180829
  3. VECTIBIX [Suspect]
     Active Substance: PANITUMUMAB
     Indication: COLORECTAL CANCER METASTATIC
     Dosage: 468 MG, Q2WK
     Route: 042
     Dates: start: 20180813, end: 20180829
  4. FLUOROURACIL. [Concomitant]
     Active Substance: FLUOROURACIL
     Dosage: 4436.3 MG, UNK (EVERY 15 DAYS)
     Dates: start: 20180425, end: 20180829

REACTIONS (5)
  - Abdominal pain [Unknown]
  - Diarrhoea [Unknown]
  - Vomiting [Unknown]
  - Feeling abnormal [Unknown]
  - Dizziness [Recovered/Resolved]

NARRATIVE: CASE EVENT DATE: 2018
